FAERS Safety Report 9417638 (Version 1)
Quarter: 2013Q3

REPORT INFORMATION
  Report Type: Spontaneous
  Country: GB (occurrence: GB)
  Receive Date: 20130724
  Receipt Date: 20130724
  Transmission Date: 20140515
  Serious: Yes (Hospitalization)
  Sender: FDA-Public Use
  Company Number: GB-TEVA-419601ISR

PATIENT
  Age: 44 Year
  Sex: Female
  Weight: 53 kg

DRUGS (9)
  1. ONDANSETRON [Suspect]
     Indication: ANTIEMETIC SUPPORTIVE CARE
     Route: 042
  2. PARACETAMOL [Concomitant]
     Indication: UMBILICAL HERNIA
  3. IBUPROFEN [Concomitant]
     Indication: UMBILICAL HERNIA
  4. FENTANYL [Concomitant]
     Indication: INDUCTION OF ANAESTHESIA
     Route: 042
  5. SEVOFLURANE [Concomitant]
     Indication: ANAESTHETIC PREMEDICATION
  6. OXYGEN [Concomitant]
     Indication: ANAESTHETIC PREMEDICATION
  7. LEVOBUPIVACAINE [Concomitant]
     Indication: ANALGESIC THERAPY
  8. CHLORPHENIRAMINE [Concomitant]
     Indication: PRURITUS
  9. PROPOFOL [Concomitant]
     Indication: INDUCTION OF ANAESTHESIA
     Route: 042

REACTIONS (1)
  - Procedural headache [Unknown]
